FAERS Safety Report 12379624 (Version 1)
Quarter: 2016Q2

REPORT INFORMATION
  Report Type: Other
  Country: ES (occurrence: ES)
  Receive Date: 20160518
  Receipt Date: 20160518
  Transmission Date: 20160815
  Serious: Yes (Other)
  Sender: FDA-Public Use
  Company Number: ES-JUBILANT GENERICS LIMITED-1052376

PATIENT
  Age: 34 Year
  Sex: Male

DRUGS (6)
  1. VALPROIC ACID. [Concomitant]
     Active Substance: VALPROIC ACID
  2. LORMETAZEPAN [Concomitant]
     Active Substance: LORMETAZEPAM
  3. OLANZAPINE. [Suspect]
     Active Substance: OLANZAPINE
  4. RISPERIDONE. [Concomitant]
     Active Substance: RISPERIDONE
  5. LORAZEPAM. [Concomitant]
     Active Substance: LORAZEPAM
  6. RISPERIDONE. [Concomitant]
     Active Substance: RISPERIDONE

REACTIONS (1)
  - Camptocormia [Recovered/Resolved]

NARRATIVE: CASE EVENT DATE: 20160502
